FAERS Safety Report 19639979 (Version 1)
Quarter: 2021Q3

REPORT INFORMATION
  Report Type: Spontaneous
  Country: US (occurrence: US)
  Receive Date: 20210730
  Receipt Date: 20210730
  Transmission Date: 20211014
  Serious: Yes (Other)
  Sender: FDA-Public Use
  Company Number: US-MYLANLABS-2021M1045925

PATIENT
  Age: 78 Year
  Sex: Female

DRUGS (3)
  1. BROMFENAC [Suspect]
     Active Substance: BROMFENAC SODIUM
     Indication: MACULAR HOLE
     Dosage: UNK
     Route: 065
  2. DORZOLAMIDE [Suspect]
     Active Substance: DORZOLAMIDE
     Indication: MACULAR HOLE
     Dosage: THREE TIMES DAILY
     Route: 065
  3. DIFLUPREDNATE [Suspect]
     Active Substance: DIFLUPREDNATE
     Indication: MACULAR HOLE
     Dosage: UNK UNK, BID
     Route: 065

REACTIONS (1)
  - Drug ineffective [Unknown]
